FAERS Safety Report 5300282-8 (Version None)
Quarter: 2007Q2

REPORT INFORMATION
  Report Type: 
  Country: None (occurrence: None)
  Receive Date: 20070418
  Receipt Date: 20070406
  Transmission Date: 20071010
  Serious: Yes (Death, Hospitalization)
  Sender: FDA-Public Use
  Company Number: US-AMGEN-US218576

PATIENT
  Sex: Male

DRUGS (4)
  1. PROCRIT [Suspect]
     Indication: ANAEMIA OF MALIGNANT DISEASE
     Dates: start: 20040101
  2. OXYCODONE HCL [Concomitant]
  3. PERCOCET [Concomitant]
  4. UNSPECIFIED HERBAL PRODUCT [Concomitant]

REACTIONS (2)
  - LUNG NEOPLASM MALIGNANT [None]
  - MALIGNANT NEOPLASM PROGRESSION [None]
